FAERS Safety Report 4356472-4 (Version None)
Quarter: 2004Q2

REPORT INFORMATION
  Report Type: 
  Country: None (occurrence: None)
  Receive Date: 20040512
  Receipt Date: 20040319
  Transmission Date: 20050107
  Serious: Yes (Hospitalization)
  Sender: FDA-Public Use
  Company Number: 200413313GDDC

PATIENT
  Sex: Female

DRUGS (2)
  1. FLUDEX [Suspect]
     Indication: CARDIAC FAILURE
     Dosage: DOSE: 3 TABS
     Route: 048
     Dates: end: 20040101
  2. IMURAN [Concomitant]
     Dosage: DOSE: UNK

REACTIONS (1)
  - TOXIC EPIDERMAL NECROLYSIS [None]
